FAERS Safety Report 9717277 (Version 1)
Quarter: 2013Q4

REPORT INFORMATION
  Report Type: Spontaneous
  Country: ES (occurrence: ES)
  Receive Date: 20131127
  Receipt Date: 20131127
  Transmission Date: 20140711
  Serious: Yes (Other)
  Sender: FDA-Public Use
  Company Number: ES-SA-2013SA121277

PATIENT
  Age: 68 Year
  Sex: Female

DRUGS (5)
  1. PLAVIX [Suspect]
     Indication: COAGULOPATHY
     Route: 048
     Dates: start: 20131118, end: 20131120
  2. VALSARTAN [Concomitant]
     Indication: HYPERTENSION
  3. BISOPROLOL [Concomitant]
     Indication: HYPERTENSION
  4. DIAZEPAM [Concomitant]
     Indication: NERVOUSNESS
  5. LANTUS SOLOSTAR [Concomitant]
     Indication: TYPE 1 DIABETES MELLITUS

REACTIONS (4)
  - Oropharyngeal pain [Recovered/Resolved]
  - Muscular weakness [Recovered/Resolved]
  - Dizziness [Recovered/Resolved]
  - Headache [Recovered/Resolved]
